FAERS Safety Report 8158322-7 (Version None)
Quarter: 2012Q1

REPORT INFORMATION
  Report Type: 
  Country: None (occurrence: None)
  Receive Date: 20120217
  Receipt Date: 20120202
  Transmission Date: 20120608
  Serious: Yes (Death)
  Sender: FDA-Public Use
  Company Number: 2012020113

PATIENT
  Age: 26 Year
  Sex: Male

DRUGS (6)
  1. DRUG UNKNOWN [Suspect]
     Dosage: ORAL
     Route: 048
  2. DIHYDROERGOCORNINE WITH DIHYDROERGOCRISTINE (DIHYDROERGOCORNINE, DIHYD [Suspect]
     Dosage: ORAL
     Route: 048
  3. CAFFEINE [Suspect]
     Dosage: ORAL
     Route: 048
  4. CITALOPRAM HYDROBROMIDE [Suspect]
     Dosage: ORAL
     Route: 048
  5. DRUG UNKNOWN [Suspect]
     Dosage: ORAL
     Route: 048
  6. PYRROLIDINONE (PYRROLIDINONE) [Suspect]
     Dosage: ORAL
     Route: 048

REACTIONS (2)
  - INTENTIONAL DRUG MISUSE [None]
  - INCORRECT DOSE ADMINISTERED [None]
